FAERS Safety Report 4802325-4 (Version None)
Quarter: 2005Q4

REPORT INFORMATION
  Report Type: 
  Country: None (occurrence: None)
  Receive Date: 20051012
  Receipt Date: 20051006
  Transmission Date: 20060501
  Serious: Yes (Other)
  Sender: FDA-Public Use
  Company Number: 143342USA

PATIENT
  Sex: Female

DRUGS (1)
  1. PIMOZIDE [Suspect]
     Dosage: ORAL
     Route: 048
     Dates: start: 19800101

REACTIONS (1)
  - TARDIVE DYSKINESIA [None]
